FAERS Safety Report 7110446-9 (Version None)
Quarter: 2010Q4

REPORT INFORMATION
  Report Type: 
  Country: None (occurrence: None)
  Receive Date: 20101116
  Receipt Date: 20101116
  Transmission Date: 20110411
  Serious: Yes (Hospitalization)
  Sender: FDA-Public Use
  Company Number: None

PATIENT
  Age: 42 Year
  Sex: Female

DRUGS (1)
  1. BUPROPION HCL [Suspect]
     Dosage: TAKE 1 TABLET DAILY

REACTIONS (3)
  - ANXIETY [None]
  - PRODUCT SUBSTITUTION ISSUE [None]
  - TENSION HEADACHE [None]
